FAERS Safety Report 5130142-7 (Version None)
Quarter: 2006Q4

REPORT INFORMATION
  Report Type: 
  Country: None (occurrence: None)
  Receive Date: 20061013
  Receipt Date: 20061002
  Transmission Date: 20070319
  Serious: Yes (Hospitalization)
  Sender: FDA-Public Use
  Company Number: 2006-02377

PATIENT
  Age: 59 Year
  Sex: Female
  Weight: 71 kg

DRUGS (24)
  1. VELCADE [Suspect]
     Indication: MULTIPLE MYELOMA
     Dosage: 1.00 MG/M2, INTRAVENOUS
     Route: 042
     Dates: start: 20060726, end: 20060802
  2. VELCADE [Suspect]
     Indication: MULTIPLE MYELOMA
     Dosage: 1.00 MG/M2, INTRAVENOUS
     Route: 042
     Dates: start: 20060617
  3. THALIDOMIDE (THALIDOMIDE) TABLET [Suspect]
     Indication: MULTIPLE MYELOMA
     Dosage: 200.00 MG, ORAL
     Route: 048
     Dates: start: 20060726, end: 20060728
  4. THALIDOMIDE (THALIDOMIDE) TABLET [Suspect]
     Indication: MULTIPLE MYELOMA
     Dosage: 200.00 MG, ORAL
     Route: 048
     Dates: start: 20060617
  5. ACYCLOVIR [Concomitant]
  6. ATIVAN [Concomitant]
  7. DEXAMETHASONE [Suspect]
     Indication: MULTIPLE MYELOMA
     Dosage: 40.00 MG, ORAL
     Route: 048
     Dates: start: 20060726, end: 20060729
  8. DEXAMETHASONE [Suspect]
     Indication: MULTIPLE MYELOMA
     Dosage: 40.00 MG, ORAL
     Route: 048
     Dates: start: 20060617
  9. CISPLATIN [Suspect]
     Indication: MULTIPLE MYELOMA
     Dosage: 18.00 MG, INTRAVENOUS
     Route: 042
     Dates: start: 20060726, end: 20060729
  10. CISPLATIN [Suspect]
     Indication: MULTIPLE MYELOMA
     Dosage: 18.00 MG, INTRAVENOUS
     Route: 042
     Dates: start: 20060617
  11. DOXORUBICIN HCL [Suspect]
     Indication: MULTIPLE MYELOMA
     Dosage: 18.00 MG, INTRAVENOUS
     Route: 042
     Dates: start: 20060726, end: 20060729
  12. DOXORUBICIN HCL [Suspect]
     Indication: MULTIPLE MYELOMA
     Dosage: 18.00 MG, INTRAVENOUS
     Route: 042
     Dates: start: 20060617
  13. CYCLOPHOSPHAMIDE [Suspect]
     Indication: MULTIPLE MYELOMA
     Dosage: 720.00 MG, INTRAVENOUS
     Route: 042
     Dates: start: 20060726, end: 20060729
  14. CYCLOPHOSPHAMIDE [Suspect]
     Indication: MULTIPLE MYELOMA
     Dosage: 720.00 MG, INTRAVENOUS
     Route: 042
     Dates: start: 20060617
  15. ETOPOSIDE [Suspect]
     Indication: MULTIPLE MYELOMA
     Dosage: 72.00 MG, INTRAVENOUS
     Route: 042
     Dates: start: 20060726, end: 20060729
  16. ETOPOSIDE [Suspect]
     Indication: MULTIPLE MYELOMA
     Dosage: 72.00 MG, INTRAVENOUS
     Route: 042
     Dates: start: 20060617
  17. FOLIC ACID [Concomitant]
  18. CALCIUM CARBONATE (CALCIUM CARBONATE) [Concomitant]
  19. RANITIDINE [Concomitant]
  20. LEVAQUIN [Concomitant]
  21. PROZAC [Concomitant]
  22. AMBISOME [Concomitant]
  23. LOVENOX [Concomitant]
  24. KYTRIL [Concomitant]

REACTIONS (3)
  - ABDOMINAL PAIN [None]
  - C-REACTIVE PROTEIN INCREASED [None]
  - GASTRITIS [None]
